FAERS Safety Report 20601636 (Version 1)
Quarter: 2022Q1

REPORT INFORMATION
  Report Type: Spontaneous
  Country: CN (occurrence: None)
  Receive Date: 20220316
  Receipt Date: 20220316
  Transmission Date: 20220423
  Serious: Yes (Life-Threatening, Other)
  Sender: FDA-Public Use
  Company Number: CN-MICRO LABS LIMITED-ML2022-00862

PATIENT
  Age: 62 Year
  Sex: Male
  Weight: 90 kg

DRUGS (8)
  1. TRANEXAMIC ACID [Suspect]
     Active Substance: TRANEXAMIC ACID
     Indication: Knee arthroplasty
     Dosage: STERILIZING THE SURGICAL AREA, TXA (1.6 G) WAS INTRAVENOUSLY ADMINISTERED
     Route: 042
  2. HYDROCHLOROTHIAZIDE\IRBESARTAN [Concomitant]
     Active Substance: HYDROCHLOROTHIAZIDE\IRBESARTAN
     Indication: Hypertension
  3. LEVAMLODIPINE BESYLATE [Concomitant]
     Active Substance: LEVAMLODIPINE BESYLATE
     Indication: Hypertension
  4. ETOMIDATE [Concomitant]
     Active Substance: ETOMIDATE
     Indication: Knee arthroplasty
     Route: 042
  5. FENTANYL [Concomitant]
     Active Substance: FENTANYL
     Indication: Knee arthroplasty
     Route: 042
  6. ROCURONIUM [Concomitant]
     Active Substance: ROCURONIUM BROMIDE
     Indication: Knee arthroplasty
     Route: 042
  7. PROPOFOL [Concomitant]
     Active Substance: PROPOFOL
     Indication: Knee arthroplasty
     Dosage: (6MG/KG/H)
     Route: 042
  8. REMIFENTANIL [Concomitant]
     Active Substance: REMIFENTANIL
     Indication: Knee arthroplasty
     Dosage: 0.2UG/KG/MIN
     Route: 042

REACTIONS (2)
  - Intracardiac thrombus [Recovered/Resolved]
  - Circulatory collapse [Recovered/Resolved]
